FAERS Safety Report 7216691-6 (Version None)
Quarter: 2011Q1

REPORT INFORMATION
  Report Type: 
  Country: None (occurrence: None)
  Receive Date: 20110110
  Receipt Date: 20101228
  Transmission Date: 20110831
  Serious: No
  Sender: FDA-Public Use
  Company Number: US-BIOGENIDEC-2011BI000467

PATIENT
  Age: 42 Year
  Sex: Female

DRUGS (3)
  1. TYSABRI [Suspect]
     Indication: MULTIPLE SCLEROSIS
     Route: 042
     Dates: start: 20101220
  2. TYSABRI [Suspect]
     Route: 042
     Dates: start: 20060908, end: 20070817
  3. TYSABRI [Suspect]
     Route: 042
     Dates: start: 20081114, end: 20091030

REACTIONS (3)
  - BODY TEMPERATURE INCREASED [None]
  - OPTIC NEURITIS [None]
  - HEADACHE [None]
